FAERS Safety Report 6745891-4 (Version None)
Quarter: 2010Q2

REPORT INFORMATION
  Report Type: 
  Country: None (occurrence: None)
  Receive Date: 20100528
  Receipt Date: 20100522
  Transmission Date: 20101027
  Serious: Yes (Other)
  Sender: FDA-Public Use
  Company Number: US-JNJFOC-20100508948

PATIENT
  Age: 10 Year
  Weight: 45.36 kg

DRUGS (2)
  1. CHILDREN'S MOTRIN [Suspect]
     Route: 065
  2. CHILDREN'S MOTRIN [Suspect]
     Indication: DRUG USE FOR UNKNOWN INDICATION
     Dosage: 300MG (15 ML), EVERY 6-8 HRS, 3 DAYS (FINISHED BOTTLE)
     Route: 065

REACTIONS (3)
  - GASTROINTESTINAL DISORDER [None]
  - PRODUCT QUALITY ISSUE [None]
  - RENAL FAILURE [None]
